FAERS Safety Report 8461606-6 (Version None)
Quarter: 2012Q2

REPORT INFORMATION
  Report Type: 
  Country: None (occurrence: None)
  Receive Date: 20120625
  Receipt Date: 20120618
  Transmission Date: 20120825
  Serious: Yes (Hospitalization, Other)
  Sender: FDA-Public Use
  Company Number: PHFR2012GB003559

PATIENT
  Sex: Female

DRUGS (8)
  1. ATENOLOL [Concomitant]
     Dosage: 25 MG, QD
  2. GABAPENTIN [Concomitant]
  3. ENOXAPARIN [Concomitant]
  4. ARIPIPRAZOLE [Concomitant]
  5. DULOXETIME HYDROCHLORIDE [Concomitant]
     Indication: DEPRESSION
  6. METFORMIN HCL [Concomitant]
  7. CLOZARIL [Suspect]
  8. LEVEMIR [Concomitant]

REACTIONS (6)
  - ANAEMIA [None]
  - INFECTION [None]
  - MENTAL IMPAIRMENT [None]
  - HYPOPHAGIA [None]
  - NEUTROPENIA [None]
  - WEIGHT INCREASED [None]
